FAERS Safety Report 23171773 (Version 2)
Quarter: 2024Q1

REPORT INFORMATION
  Report Type: Report from Study
  Country: US (occurrence: US)
  Receive Date: 20231110
  Receipt Date: 20240205
  Transmission Date: 20240409
  Serious: Yes (Other)
  Sender: FDA-Public Use
  Company Number: US-JNJFOC-20231077192

PATIENT
  Age: 48 Year
  Sex: Female

DRUGS (2)
  1. SPRAVATO [Suspect]
     Active Substance: ESKETAMINE
     Indication: Depression
     Dates: start: 20230816
  2. RAMIPRIL [Concomitant]
     Active Substance: RAMIPRIL
     Indication: Blood pressure abnormal
     Dosage: ON TREATMENT DAYS ONLY
     Route: 048
     Dates: start: 20230810

REACTIONS (3)
  - Hysterectomy [Unknown]
  - Depression [Unknown]
  - Stress [Unknown]

NARRATIVE: CASE EVENT DATE: 20230101
